FAERS Safety Report 8273865-3 (Version None)
Quarter: 2012Q2

REPORT INFORMATION
  Report Type: 
  Country: None (occurrence: None)
  Receive Date: 20120411
  Receipt Date: 20120405
  Transmission Date: 20120825
  Serious: Yes (Life-Threatening)
  Sender: FDA-Public Use
  Company Number: JP-BAYER-2012-022561

PATIENT
  Age: 76 Year
  Sex: Male
  Weight: 55 kg

DRUGS (8)
  1. LASIX [Suspect]
     Dosage: DAILY DOSE 40 MG
     Route: 048
     Dates: start: 20120222
  2. NEXAVAR [Suspect]
     Indication: HEPATIC NEOPLASM MALIGNANT
     Dosage: 400 MG, BID
     Route: 048
     Dates: start: 20111212, end: 20120105
  3. AVAPRO [Suspect]
     Dosage: DAILY DOSE 100 MG
     Route: 048
     Dates: start: 20110802
  4. NEXAVAR [Suspect]
     Dosage: 400 MG DAILY
     Route: 048
     Dates: start: 20120118, end: 20120302
  5. URSO 250 [Suspect]
     Dosage: DAILY DOSE 600 MG
     Route: 048
  6. AMLODIPINE [Suspect]
     Dosage: DAILY DOSE 5 MG
     Route: 048
     Dates: start: 20111219
  7. NEXIUM [Suspect]
     Dosage: DAILY DOSE 20 MG
     Route: 048
     Dates: start: 20111228
  8. LIVACT [Suspect]
     Dosage: DAILY DOSE 12.45 G
     Route: 048
     Dates: start: 20120111

REACTIONS (1)
  - LIVER CARCINOMA RUPTURED [None]
